FAERS Safety Report 4783717-9 (Version None)
Quarter: 2005Q3

REPORT INFORMATION
  Report Type: 
  Country: None (occurrence: None)
  Receive Date: 20050928
  Receipt Date: 20050916
  Transmission Date: 20060218
  Serious: Yes (Hospitalization)
  Sender: FDA-Public Use
  Company Number: 2005127944

PATIENT
  Age: 78 Year
  Sex: Female

DRUGS (5)
  1. SPIRONOLACTONE [Suspect]
     Indication: ILL-DEFINED DISORDER
     Dosage: 50 MG
  2. ENALAPRIL MALEATE [Suspect]
     Indication: ILL-DEFINED DISORDER
     Dosage: 50 MG
  3. HYDROCHLOROTHIAZIDE [Suspect]
     Indication: ILL-DEFINED DISORDER
     Dosage: 50 MG
  4. MODURETIC 5-50 [Suspect]
     Indication: ILL-DEFINED DISORDER
     Dosage: 5 MG
  5. DIGOXIN [Suspect]
     Indication: ILL-DEFINED DISORDER
     Dosage: 0.25 MG

REACTIONS (18)
  - ATRIAL FIBRILLATION [None]
  - BLOOD BICARBONATE DECREASED [None]
  - BLOOD CREATININE INCREASED [None]
  - BLOOD GLUCOSE INCREASED [None]
  - BLOOD PH DECREASED [None]
  - BLOOD PRESSURE DECREASED [None]
  - BLOOD UREA INCREASED [None]
  - CARDIAC MURMUR [None]
  - DEHYDRATION [None]
  - DIALYSIS [None]
  - ELECTROCARDIOGRAM QRS COMPLEX PROLONGED [None]
  - HAEMODIALYSIS [None]
  - HYPERKALAEMIA [None]
  - HYPONATRAEMIA [None]
  - PO2 DECREASED [None]
  - SYNCOPE [None]
  - TACHYCARDIA [None]
  - VENTRICULAR HYPERTROPHY [None]
